FAERS Safety Report 18965443 (Version 2)
Quarter: 2021Q1

REPORT INFORMATION
  Report Type: Spontaneous
  Country: AR (occurrence: AR)
  Receive Date: 20210304
  Receipt Date: 20210319
  Transmission Date: 20210420
  Serious: Yes (Disabling, Other)
  Sender: FDA-Public Use
  Company Number: AR-AMGEN-ARGSP2021028803

PATIENT
  Age: 60 Year
  Sex: Female

DRUGS (1)
  1. ENBREL [Suspect]
     Active Substance: ETANERCEPT
     Indication: RHEUMATOID ARTHRITIS
     Dosage: 50 MG, WEEKLY
     Route: 065
     Dates: start: 20190923, end: 202011

REACTIONS (3)
  - Gait inability [Not Recovered/Not Resolved]
  - Disease progression [Not Recovered/Not Resolved]
  - Fracture [Recovered/Resolved]

NARRATIVE: CASE EVENT DATE: 202011
